FAERS Safety Report 25014834 (Version 2)
Quarter: 2025Q2

REPORT INFORMATION
  Report Type: Report from Study
  Country: US (occurrence: US)
  Receive Date: 20250226
  Receipt Date: 20250527
  Transmission Date: 20250717
  Serious: Yes (Hospitalization)
  Sender: PFIZER
  Company Number: US-PFIZER INC-PV202500023179

PATIENT
  Age: 79 Year
  Sex: Male

DRUGS (2)
  1. VYNDAMAX [Suspect]
     Active Substance: TAFAMIDIS
     Indication: Cardiac amyloidosis
     Dosage: 61MG CAPSULE BY MOUTH ONCE A DAY
     Route: 048
     Dates: start: 202405
  2. VYNDAMAX [Suspect]
     Active Substance: TAFAMIDIS
     Dosage: 61 MG, 1X/DAY
     Route: 048
     Dates: end: 202502

REACTIONS (2)
  - Dehydration [Unknown]
  - Product dose omission issue [Unknown]
